FAERS Safety Report 12889333 (Version 1)
Quarter: 2016Q4

REPORT INFORMATION
  Report Type: Spontaneous
  Country: TW (occurrence: TW)
  Receive Date: 20161027
  Receipt Date: 20161027
  Transmission Date: 20170207
  Serious: Yes (Hospitalization)
  Sender: FDA-Public Use
  Company Number: TW-ASTELLAS-2016US031678

PATIENT
  Age: 51 Year
  Sex: Male

DRUGS (7)
  1. PROGRAF [Suspect]
     Active Substance: TACROLIMUS\TACROLIMUS ANHYDROUS
     Dosage: 14 MG (DAILY DOSE), TWICE DAILY
     Route: 048
     Dates: start: 20160502, end: 20160714
  2. PROGRAF [Suspect]
     Active Substance: TACROLIMUS\TACROLIMUS ANHYDROUS
     Dosage: 16 MG (DAILY DOSE), TWICE DAILY
     Route: 048
     Dates: start: 20160715, end: 20160811
  3. CELLCEPT [Concomitant]
     Active Substance: MYCOPHENOLATE MOFETIL\MYCOPHENOLATE MOFETIL HYDROCHLORIDE
     Indication: RENAL TRANSPLANT
     Dosage: 1000 MG (DAILY DOSE), TWICE DAILY
     Route: 048
     Dates: start: 20160415
  4. PROGRAF [Suspect]
     Active Substance: TACROLIMUS\TACROLIMUS ANHYDROUS
     Dosage: 8 MG (DAILY DOSE), TWICE DAILY
     Route: 048
     Dates: start: 20160422, end: 20160424
  5. PROGRAF [Suspect]
     Active Substance: TACROLIMUS\TACROLIMUS ANHYDROUS
     Dosage: 15 MG (DAILY DOSE), TWICE DAILY
     Route: 048
     Dates: start: 20160812
  6. PROGRAF [Suspect]
     Active Substance: TACROLIMUS\TACROLIMUS ANHYDROUS
     Dosage: 10 MG (DAILY DOSE), TWICE DAILY
     Route: 048
     Dates: start: 20160425, end: 20160501
  7. PROGRAF [Suspect]
     Active Substance: TACROLIMUS\TACROLIMUS ANHYDROUS
     Indication: RENAL TRANSPLANT
     Dosage: 6 MG (DAILY DOSE), TWICE DAILY
     Route: 048
     Dates: start: 20160415, end: 20160421

REACTIONS (2)
  - Kidney transplant rejection [Recovered/Resolved]
  - Drug level fluctuating [Recovered/Resolved]

NARRATIVE: CASE EVENT DATE: 20160418
